FAERS Safety Report 21044120 (Version 1)
Quarter: 2022Q3

REPORT INFORMATION
  Report Type: Spontaneous
  Country: US (occurrence: None)
  Receive Date: 20220701
  Receipt Date: 20220701
  Transmission Date: 20221027
  Serious: No
  Sender: FDA-Public Use
  Company Number: None

PATIENT
  Age: 63 Year
  Sex: Male
  Weight: 91.63 kg

DRUGS (2)
  1. CARBAMAZEPINE [Suspect]
     Active Substance: CARBAMAZEPINE
     Indication: Trigeminal neuralgia
     Dosage: 200 MG BID
     Dates: start: 20220121, end: 20220522
  2. TEGRETOL [Concomitant]
     Active Substance: CARBAMAZEPINE
     Dates: start: 20220523, end: 20220701

REACTIONS (3)
  - Facial pain [None]
  - Product substitution issue [None]
  - Breakthrough pain [None]
